FAERS Safety Report 19192105 (Version 2)
Quarter: 2021Q2

REPORT INFORMATION
  Report Type: Report from Study
  Country: DE (occurrence: DE)
  Receive Date: 20210428
  Receipt Date: 20210503
  Transmission Date: 20210717
  Serious: Yes (Hospitalization, Other)
  Sender: FDA-Public Use
  Company Number: DE-BRISTOL-MYERS SQUIBB COMPANY-BMS-2021-039433

PATIENT
  Age: 70 Year
  Sex: Male
  Weight: 89.5 kg

DRUGS (2)
  1. NIVOLUMAB [Suspect]
     Active Substance: NIVOLUMAB
     Indication: TRANSITIONAL CELL CARCINOMA
     Dosage: 89.5 MILLIGRAM
     Route: 065
     Dates: start: 20201118
  2. IPILIMUMAB [Suspect]
     Active Substance: IPILIMUMAB
     Indication: TRANSITIONAL CELL CARCINOMA
     Dosage: 268.5 MILLIGRAM
     Route: 065
     Dates: start: 20210113

REACTIONS (1)
  - Retroperitoneum cyst [Unknown]

NARRATIVE: CASE EVENT DATE: 20210414
